FAERS Safety Report 25050673 (Version 1)
Quarter: 2025Q1

REPORT INFORMATION
  Report Type: Spontaneous
  Country: BE (occurrence: BE)
  Receive Date: 20250307
  Receipt Date: 20250307
  Transmission Date: 20250408
  Serious: Yes (Other)
  Sender: IPSEN BIOPHARMACEUTICALS, INC.
  Company Number: BE-IPSEN Group, Research and Development-2025-04774

PATIENT
  Age: 43 Year
  Sex: Female
  Weight: 58 kg

DRUGS (2)
  1. LANREOTIDE ACETATE [Suspect]
     Active Substance: LANREOTIDE ACETATE
     Indication: Pancreatic neuroendocrine tumour
     Route: 058
     Dates: start: 20240220, end: 20240307
  2. LANREOTIDE ACETATE [Suspect]
     Active Substance: LANREOTIDE ACETATE
     Indication: Neuroendocrine tumour
     Route: 058
     Dates: start: 20241230

REACTIONS (2)
  - Jaundice cholestatic [Recovered/Resolved]
  - Jaundice [Recovered/Resolved]

NARRATIVE: CASE EVENT DATE: 20250102
